FAERS Safety Report 7483026-3 (Version None)
Quarter: 2011Q2

REPORT INFORMATION
  Report Type: 
  Country: None (occurrence: None)
  Receive Date: 20110516
  Receipt Date: 20070709
  Transmission Date: 20111010
  Serious: Yes (Death, Hospitalization, Disabling)
  Sender: FDA-Public Use
  Company Number: US-BAYER-200712161BWH

PATIENT
  Age: 71 Year
  Sex: Male
  Weight: 77 kg

DRUGS (10)
  1. ATENOLOL [Concomitant]
     Indication: HYPERTENSION
     Dosage: 25MG +#8211;TAKE ? TABLET DAILY
     Route: 048
     Dates: start: 19960802, end: 20040713
  2. COUMADIN [Concomitant]
     Dosage: 2MG DAILY
     Route: 048
     Dates: start: 19960802
  3. ACETYLSALICYLIC ACID SRT [Concomitant]
     Dosage: 325MG DAILY
     Route: 048
  4. TRASYLOL [Suspect]
     Indication: TRICUSPID VALVE REPAIR
     Dosage: LOADING DOSE OF 200CC BOLUS FOLLOWED BY 50 CC/ HOUR INFUSION; 200 CC PUMP PRIME WAS GIVEN.
     Route: 042
     Dates: start: 20031121, end: 20031121
  5. LASIX [Concomitant]
     Dosage: 80MG TWICE DAILY
     Route: 048
     Dates: start: 20000601, end: 20040713
  6. HEPARIN [Concomitant]
     Dosage: 400000
     Route: 042
  7. TRASYLOL [Suspect]
  8. PLATELETS [Concomitant]
     Dosage: 2 U, UNK
     Dates: start: 20031121
  9. TRASYLOL [Suspect]
     Indication: CORONARY ARTERY BYPASS
  10. PROTAMINE SULFATE [Concomitant]
     Dosage: 350 MG, UNK
     Route: 042
     Dates: start: 20031121, end: 20031121

REACTIONS (9)
  - EMOTIONAL DISTRESS [None]
  - RENAL FAILURE [None]
  - PAIN [None]
  - INJURY [None]
  - FEAR [None]
  - ANHEDONIA [None]
  - ANXIETY [None]
  - UNEVALUABLE EVENT [None]
  - DEPRESSION [None]
